FAERS Safety Report 17982686 (Version 1)
Quarter: 2020Q3

REPORT INFORMATION
  Report Type: Spontaneous
  Country: US (occurrence: US)
  Receive Date: 20200702
  Receipt Date: 20200702
  Transmission Date: 20201103
  Serious: Yes (Hospitalization)
  Sender: FDA-Public Use
  Company Number: None

PATIENT
  Age: 74 Year
  Sex: Female

DRUGS (6)
  1. PLAVIX [Suspect]
     Active Substance: CLOPIDOGREL BISULFATE
  2. LIPITOR [Suspect]
     Active Substance: ATORVASTATIN CALCIUM
  3. ESBRIET [Suspect]
     Active Substance: PIRFENIDONE
     Indication: IDIOPATHIC PULMONARY FIBROSIS
     Dosage: ?          OTHER DOSE:1 TAB;?
     Route: 048
     Dates: start: 20180306
  4. HYDROXYZ HCL [Suspect]
     Active Substance: HYDROXYZINE HYDROCHLORIDE
  5. MAGNESIUM [Suspect]
     Active Substance: MAGNESIUM
  6. ISOSORB MONO [Suspect]
     Active Substance: ISOSORBIDE MONONITRATE

REACTIONS (3)
  - Pain [None]
  - Upper limb fracture [None]
  - Fall [None]

NARRATIVE: CASE EVENT DATE: 20200629
